FAERS Safety Report 10086768 (Version 1)
Quarter: 2014Q2

REPORT INFORMATION
  Report Type: Report from Study
  Country: CO (occurrence: CO)
  Receive Date: 20140418
  Receipt Date: 20140418
  Transmission Date: 20141212
  Serious: Yes (Hospitalization)
  Sender: FDA-Public Use
  Company Number: CO-ABBVIE-14P-036-1227286-00

PATIENT
  Age: 52 Year
  Sex: Female
  Weight: 60 kg

DRUGS (1)
  1. HUMIRA [Suspect]
     Indication: ANKYLOSING SPONDYLITIS
     Route: 058
     Dates: start: 20140401, end: 20140415

REACTIONS (5)
  - Chills [Recovering/Resolving]
  - Paraesthesia [Recovering/Resolving]
  - Joint stiffness [Recovering/Resolving]
  - Blood potassium decreased [Recovering/Resolving]
  - Blood phosphorus decreased [Recovering/Resolving]
